FAERS Safety Report 16803136 (Version 3)
Quarter: 2019Q4

REPORT INFORMATION
  Report Type: Report from Study
  Country: US (occurrence: US)
  Receive Date: 20190913
  Receipt Date: 20191202
  Transmission Date: 20200122
  Serious: No
  Sender: FDA-Public Use
  Company Number: PHEH2019US037448

PATIENT
  Sex: Female

DRUGS (1)
  1. COSENTYX [Suspect]
     Active Substance: SECUKINUMAB
     Indication: PSORIASIS
     Dosage: 300 MG, UNK (300MG Q WEEKLY X 5 WEEKS THEN 300 MG, Q4W)
     Route: 058
     Dates: start: 20190416

REACTIONS (6)
  - Pruritus [Unknown]
  - Furuncle [Unknown]
  - Psoriasis [Unknown]
  - Dermal cyst [Unknown]
  - Skin infection [Unknown]
  - Pain in extremity [Unknown]
